FAERS Safety Report 7810381-4 (Version None)
Quarter: 2011Q4

REPORT INFORMATION
  Report Type: 
  Country: None (occurrence: None)
  Receive Date: 20111012
  Receipt Date: 20111005
  Transmission Date: 20120403
  Serious: Yes (Other)
  Sender: FDA-Public Use
  Company Number: US-ASTRAZENECA-2010SE26831

PATIENT
  Age: 89 Year
  Sex: Female

DRUGS (1)
  1. ARIMIDEX [Suspect]
     Route: 048

REACTIONS (10)
  - HYPOAESTHESIA [None]
  - FALL [None]
  - DYSPNOEA [None]
  - OXYGEN SATURATION DECREASED [None]
  - NEOPLASM MALIGNANT [None]
  - PAIN [None]
  - ASTHMA [None]
  - COUGH [None]
  - MUSCULAR WEAKNESS [None]
  - DRUG DOSE OMISSION [None]
